FAERS Safety Report 25024790 (Version 1)
Quarter: 2025Q1

REPORT INFORMATION
  Report Type: Spontaneous
  Country: US (occurrence: None)
  Receive Date: 20250225
  Receipt Date: 20250225
  Transmission Date: 20250408
  Serious: Yes (Hospitalization)
  Sender: FDA-CTU
  Company Number: None

PATIENT
  Age: 51 Year
  Sex: Female
  Weight: 48.15 kg

DRUGS (10)
  1. TRANSCON FIRST AMENITY KIT [Suspect]
     Active Substance: SODIUM FLUORIDE
     Indication: Hypoparathyroidism
     Route: 050
     Dates: start: 20191219
  2. LEVOXYL [Concomitant]
     Active Substance: LEVOTHYROXINE SODIUM
  3. CYTOMEL [Concomitant]
     Active Substance: LIOTHYRONINE SODIUM
  4. HYDROCHLOROTHIAZIDE [Concomitant]
     Active Substance: HYDROCHLOROTHIAZIDE
  5. LUNESTA [Concomitant]
     Active Substance: ESZOPICLONE
  6. XANAX [Concomitant]
     Active Substance: ALPRAZOLAM
  7. SINGULAIR [Concomitant]
     Active Substance: MONTELUKAST SODIUM
  8. VENLAFAXINE [Concomitant]
     Active Substance: VENLAFAXINE HYDROCHLORIDE
  9. RUVASTIN [Concomitant]
  10. B12 [Concomitant]

REACTIONS (4)
  - Blood calcium increased [None]
  - Vomiting [None]
  - Headache [None]
  - Impaired quality of life [None]

NARRATIVE: CASE EVENT DATE: 20250108
